FAERS Safety Report 8245844-3 (Version None)
Quarter: 2012Q1

REPORT INFORMATION
  Report Type: 
  Country: None (occurrence: None)
  Receive Date: 20120330
  Receipt Date: 20120316
  Transmission Date: 20120608
  Serious: Yes (Other)
  Sender: FDA-Public Use
  Company Number: AU-RANBAXY-2012RR-53735

PATIENT
  Age: 50 Year
  Sex: Male

DRUGS (10)
  1. VALPROIC ACID [Suspect]
     Dosage: 1000 MG, UNK
     Route: 065
  2. FLUOXETINE [Suspect]
     Indication: MENTAL DISORDER
     Dosage: UNK
     Route: 065
  3. VENLAFAXINE [Suspect]
     Indication: MENTAL DISORDER
     Dosage: 300 MG/DAY
     Route: 065
  4. VALPROIC ACID [Suspect]
     Indication: MENTAL DISORDER
     Dosage: 800 MG, UNK
     Route: 065
  5. ZOLPIDEM TARTRATE [Suspect]
     Indication: MENTAL DISORDER
     Dosage: 10 MG
     Route: 065
  6. ZOPICLONE [Suspect]
     Indication: MENTAL DISORDER
     Route: 065
  7. METOCLOPRAMIDE [Suspect]
     Indication: PRODUCT USED FOR UNKNOWN INDICATION
     Dosage: UNK
     Route: 065
  8. DIAZEPAM [Suspect]
     Indication: MENTAL DISORDER
     Dosage: UNK
     Route: 065
  9. CIPROFLOXACIN [Suspect]
     Indication: PRODUCT USED FOR UNKNOWN INDICATION
     Dosage: UNK
     Route: 065
  10. AMITRIPTYLINE HCL [Suspect]
     Indication: MENTAL DISORDER
     Dosage: UNK
     Route: 065

REACTIONS (5)
  - AKATHISIA [None]
  - SOMNAMBULISM [None]
  - DRUG INTERACTION [None]
  - HOMICIDE [None]
  - SEROTONIN SYNDROME [None]
